FAERS Safety Report 25156211 (Version 1)
Quarter: 2025Q2

REPORT INFORMATION
  Report Type: Spontaneous
  Country: US (occurrence: None)
  Receive Date: 20250403
  Receipt Date: 20250403
  Transmission Date: 20250716
  Serious: Yes (Death)
  Sender: FDA-CTU
  Company Number: None

PATIENT
  Age: 83 Year
  Sex: Male

DRUGS (1)
  1. XDEMVY [Suspect]
     Active Substance: LOTILANER
     Indication: Ocular demodicosis
     Dosage: OTHER QUANTITY : 1 DROP INTO BOTH EYES ;?FREQUENCY : TWICE A DAY;?
     Route: 047
     Dates: start: 20241212

REACTIONS (1)
  - Death [None]

NARRATIVE: CASE EVENT DATE: 20250403
